FAERS Safety Report 10036422 (Version 2)
Quarter: 2014Q2

REPORT INFORMATION
  Report Type: Spontaneous
  Country: US (occurrence: US)
  Receive Date: 20140325
  Receipt Date: 20140520
  Transmission Date: 20141212
  Serious: Yes (Other)
  Sender: FDA-Public Use
  Company Number: US-TEVA-470356USA

PATIENT
  Sex: Female

DRUGS (2)
  1. MODAFINIL [Suspect]
     Indication: SOMNOLENCE
  2. NUVIGIL [Suspect]

REACTIONS (3)
  - Age-related macular degeneration [Not Recovered/Not Resolved]
  - Dry eye [Not Recovered/Not Resolved]
  - Off label use [Not Recovered/Not Resolved]
